FAERS Safety Report 6565424-5 (Version None)
Quarter: 2010Q1

REPORT INFORMATION
  Report Type: 
  Country: None (occurrence: None)
  Receive Date: 20100201
  Receipt Date: 20100125
  Transmission Date: 20100710
  Serious: Yes (Other)
  Sender: FDA-Public Use
  Company Number: PHHY2010CA04245

PATIENT
  Sex: Female

DRUGS (1)
  1. COMBIPATCH [Suspect]
     Dosage: 140/50

REACTIONS (6)
  - ERYTHEMA [None]
  - HOT FLUSH [None]
  - INSOMNIA [None]
  - MENOPAUSAL SYMPTOMS [None]
  - PRURITUS [None]
  - SKIN IRRITATION [None]
